FAERS Safety Report 6142248-4 (Version None)
Quarter: 2009Q2

REPORT INFORMATION
  Report Type: 
  Country: None (occurrence: None)
  Receive Date: 20090401
  Receipt Date: 20090401
  Transmission Date: 20091009
  Serious: Yes (Hospitalization)
  Sender: FDA-Public Use
  Company Number: None

PATIENT
  Age: 85 Year
  Sex: Male

DRUGS (1)
  1. ROCEPHIN [Suspect]

REACTIONS (4)
  - BACTERIA STOOL IDENTIFIED [None]
  - CLOSTRIDIAL INFECTION [None]
  - DIARRHOEA [None]
  - LETHARGY [None]
